FAERS Safety Report 13969652 (Version 1)
Quarter: 2017Q3

REPORT INFORMATION
  Report Type: Spontaneous
  Country: NL (occurrence: NL)
  Receive Date: 20170914
  Receipt Date: 20170914
  Transmission Date: 20171128
  Serious: Yes (Other)
  Sender: FDA-Public Use
  Company Number: NL-GLAXOSMITHKLINE-NL2017GSK142114

PATIENT
  Age: 78 Year
  Sex: Female

DRUGS (2)
  1. CRESTOR [Concomitant]
     Active Substance: ROSUVASTATIN CALCIUM
     Indication: PRODUCT USED FOR UNKNOWN INDICATION
     Dosage: UNK
  2. FLUTICASONE. [Suspect]
     Active Substance: FLUTICASONE
     Indication: RHINORRHOEA
     Dosage: 100 UG, QD
     Dates: start: 20170602, end: 20170819

REACTIONS (4)
  - Product use in unapproved indication [Recovered/Resolved]
  - Conjunctival haemorrhage [Recovered/Resolved]
  - Oral mucosal discolouration [Recovered/Resolved]
  - Epistaxis [Recovered/Resolved]

NARRATIVE: CASE EVENT DATE: 201706
